FAERS Safety Report 5619524-4 (Version None)
Quarter: 2008Q1

REPORT INFORMATION
  Report Type: 
  Country: None (occurrence: None)
  Receive Date: 20080205
  Receipt Date: 20080205
  Transmission Date: 20080703
  Serious: No
  Sender: FDA-Public Use
  Company Number: None

PATIENT
  Sex: Female
  Weight: 99.7913 kg

DRUGS (1)
  1. DEPROVERA ? PIZER [Suspect]
     Indication: CONTRACEPTION
     Dosage: 3 3 MO SQ
     Route: 058
     Dates: start: 19880505, end: 19890305

REACTIONS (5)
  - FIBROMYALGIA [None]
  - HYPERSENSITIVITY [None]
  - IMPAIRED WORK ABILITY [None]
  - MIGRAINE [None]
  - WEIGHT INCREASED [None]
